FAERS Safety Report 7242241-4 (Version None)
Quarter: 2011Q1

REPORT INFORMATION
  Report Type: 
  Country: None (occurrence: None)
  Receive Date: 20110124
  Receipt Date: 20110113
  Transmission Date: 20110831
  Serious: Yes (Other)
  Sender: FDA-Public Use
  Company Number: CH-GENENTECH-312474

PATIENT
  Age: 73 Year
  Sex: Female

DRUGS (3)
  1. MABTHERA [Suspect]
     Dosage: UNK UNK, Q6M
     Route: 042
  2. MABTHERA [Suspect]
     Dosage: UNK UNK, Q3M
     Route: 042
  3. MABTHERA [Suspect]
     Indication: B-CELL LYMPHOMA
     Dosage: UNK UNK, Q2M
     Route: 042

REACTIONS (4)
  - NEOPLASM MALIGNANT [None]
  - THROMBOCYTOPENIA [None]
  - NEUROPATHY PERIPHERAL [None]
  - LEUKOPENIA [None]
